FAERS Safety Report 8032692-2 (Version None)
Quarter: 2012Q1

REPORT INFORMATION
  Report Type: 
  Country: None (occurrence: None)
  Receive Date: 20120110
  Receipt Date: 20120103
  Transmission Date: 20120608
  Serious: Yes (Hospitalization)
  Sender: FDA-Public Use
  Company Number: US-BAYER-2011-051088

PATIENT
  Age: 26 Year
  Sex: Female
  Weight: 127.89 kg

DRUGS (10)
  1. BUPROPION HYDROCHLORIDE [Concomitant]
     Indication: ANXIETY
     Dosage: 150 MG, UNK
     Route: 048
     Dates: start: 20050601, end: 20100201
  2. DROSPIRENONE AND ETHINYL ESTRADIOL [Suspect]
     Indication: CONTRACEPTION
     Dosage: UNK
     Route: 048
     Dates: start: 20080701, end: 20091001
  3. AZITHROMYCIN [Concomitant]
     Dosage: UNK
     Dates: start: 20091001
  4. PRILOSEC [Concomitant]
     Route: 048
  5. MUCINEX [Concomitant]
     Route: 048
  6. AMOXICILLIN [Concomitant]
     Indication: SINUSITIS
     Dosage: 500 MG, BID
     Dates: start: 20091108
  7. SERTRALINE HYDROCHLORIDE [Concomitant]
     Indication: ANXIETY
     Dosage: 50 MG, UNK
     Route: 048
     Dates: start: 20060901
  8. PROMETHAZINE [Concomitant]
     Dosage: 12.5 MG, UNK
  9. ALBUTEROL [Concomitant]
  10. YASMIN [Suspect]
     Indication: CONTRACEPTION
     Dosage: UNK
     Route: 048
     Dates: start: 20040501, end: 20080701

REACTIONS (11)
  - DYSPNOEA [None]
  - ANXIETY [None]
  - ANHEDONIA [None]
  - CHEST PAIN [None]
  - EMOTIONAL DISTRESS [None]
  - PAIN IN EXTREMITY [None]
  - PULMONARY EMBOLISM [None]
  - INJURY [None]
  - GENERAL PHYSICAL HEALTH DETERIORATION [None]
  - DEEP VEIN THROMBOSIS [None]
  - PAIN [None]
